FAERS Safety Report 9651461 (Version 2)
Quarter: 2013Q4

REPORT INFORMATION
  Report Type: Spontaneous
  Country: US (occurrence: US)
  Receive Date: 20131029
  Receipt Date: 20131106
  Transmission Date: 20140711
  Serious: Yes (Hospitalization)
  Sender: FDA-Public Use
  Company Number: US-JNJFOC-20131012793

PATIENT
  Sex: Female

DRUGS (2)
  1. XARELTO [Suspect]
     Indication: PULMONARY EMBOLISM
     Route: 048
     Dates: start: 20131018
  2. DIOVAN [Concomitant]
     Route: 065

REACTIONS (1)
  - Duodenal ulcer haemorrhage [Recovering/Resolving]
